FAERS Safety Report 4614088-6 (Version None)
Quarter: 2005Q1

REPORT INFORMATION
  Report Type: 
  Country: None (occurrence: None)
  Receive Date: 20050316
  Receipt Date: 20050301
  Transmission Date: 20050727
  Serious: Yes (Hospitalization)
  Sender: FDA-Public Use
  Company Number: 2005JP000161

PATIENT
  Age: 4 Year
  Sex: Female
  Weight: 13.3 kg

DRUGS (12)
  1. TACROLIMUS INJECTION(TACROLIMUS INJECTION) INJECTION [Suspect]
     Indication: RENAL TRANSPLANT
     Dosage: 0.70 MG, INTRAVENOUS; SEE IMAGE
     Route: 042
     Dates: start: 20011028, end: 20011105
  2. TACROLIMUS INJECTION(TACROLIMUS INJECTION) INJECTION [Suspect]
     Indication: RENAL TRANSPLANT
     Dosage: 0.70 MG, INTRAVENOUS; SEE IMAGE
     Route: 042
     Dates: start: 20011106, end: 20011107
  3. TACROLIMUS INJECTION(TACROLIMUS INJECTION) INJECTION [Suspect]
     Indication: RENAL TRANSPLANT
     Dosage: 0.70 MG, INTRAVENOUS; SEE IMAGE
     Route: 042
     Dates: start: 20011108, end: 20011116
  4. TACROLIMUS INJECTION(TACROLIMUS INJECTION) INJECTION [Suspect]
     Indication: RENAL TRANSPLANT
     Dosage: 0.70 MG, INTRAVENOUS; SEE IMAGE
     Route: 042
     Dates: start: 20011117, end: 20011117
  5. TACROLIMUS INJECTION(TACROLIMUS INJECTION) INJECTION [Suspect]
     Indication: RENAL TRANSPLANT
     Dosage: 0.70 MG, INTRAVENOUS; SEE IMAGE
     Route: 042
     Dates: start: 20011118
  6. METHYLPREDNISOLONE (METHYLPREDNISOLONE) INJECTION [Concomitant]
  7. MYCOPHENOLATE MOFETIL (MYCOPHENOLATE MOFETIL) [Concomitant]
  8. MIZORIBINE (MIZORIBINE) [Concomitant]
  9. DENOSINE ^TANABE^ (GANCICLOVIR) INJECTION [Concomitant]
  10. ATELEC (CILNIDIPINE) [Concomitant]
  11. CEFAMEZIN (CEFAZOLIN SODIUM) INJECTION [Concomitant]
  12. KEITEN (CEFPIROME SULFATE) INJECTION [Concomitant]

REACTIONS (4)
  - BLOOD UREA INCREASED [None]
  - COMPLICATIONS OF TRANSPLANTED KIDNEY [None]
  - KIDNEY RUPTURE [None]
  - TRANSPLANT ABSCESS [None]
